FAERS Safety Report 5120573-3 (Version None)
Quarter: 2006Q4

REPORT INFORMATION
  Report Type: 
  Country: None (occurrence: None)
  Receive Date: 20061002
  Receipt Date: 20060921
  Transmission Date: 20070319
  Serious: Yes (Other)
  Sender: FDA-Public Use
  Company Number: 087-20785-06090864

PATIENT
  Sex: 0

DRUGS (2)
  1. THALOMID [Suspect]
     Indication: PROSTATE CANCER
     Dosage: 100-1200 MG, DAILY, ORAL
     Route: 048
  2. DOCETAXEL (DOCETAXEL) [Suspect]
     Indication: PROSTATE CANCER

REACTIONS (11)
  - CONSTIPATION [None]
  - DIZZINESS [None]
  - FATIGUE [None]
  - HYPERGLYCAEMIA [None]
  - MOOD ALTERED [None]
  - NEUROPATHY [None]
  - OEDEMA [None]
  - PULMONARY TOXICITY [None]
  - RASH [None]
  - SOMNOLENCE [None]
  - THROMBOSIS [None]
